FAERS Safety Report 7691078-0 (Version None)
Quarter: 2011Q3

REPORT INFORMATION
  Report Type: 
  Country: None (occurrence: None)
  Receive Date: 20110815
  Receipt Date: 20110805
  Transmission Date: 20111222
  Serious: Yes (Life-Threatening)
  Sender: FDA-Public Use
  Company Number: 2011AP001700

PATIENT
  Age: 49 Year
  Sex: Female

DRUGS (4)
  1. LEFLUNOMIDE [Suspect]
     Indication: PSORIATIC ARTHROPATHY
     Dosage: 20 MG;QD; PO
     Route: 048
     Dates: start: 20100107
  2. ACETAMINOPHEN [Concomitant]
  3. TRAMADOL HYDROCHLORIDE [Concomitant]
  4. ZOPICLONE (ZOPICLONE) [Concomitant]

REACTIONS (2)
  - RENAL CELL CARCINOMA [None]
  - ARTHRALGIA [None]
